FAERS Safety Report 18814469 (Version 7)
Quarter: 2021Q1

REPORT INFORMATION
  Report Type: Spontaneous
  Country: US (occurrence: US)
  Receive Date: 20210201
  Receipt Date: 20210325
  Transmission Date: 20210419
  Serious: No
  Sender: FDA-Public Use
  Company Number: US-DSJP-DSU-2021-102041

PATIENT
  Age: 46 Year
  Sex: Female

DRUGS (2)
  1. TURALIO [Suspect]
     Active Substance: PEXIDARTINIB HYDROCHLORIDE
     Indication: SYNOVITIS
     Dosage: 400 MG, BID
     Route: 048
     Dates: start: 20210113
  2. SENNA                              /00142201/ [Concomitant]
     Active Substance: SENNA LEAF
     Indication: CONSTIPATION
     Dosage: UNK
     Route: 065

REACTIONS (11)
  - Arthritis [Unknown]
  - Headache [Recovered/Resolved]
  - Eye swelling [Recovering/Resolving]
  - Adverse drug reaction [Not Recovered/Not Resolved]
  - Constipation [Recovered/Resolved]
  - Eye infection [Recovered/Resolved]
  - Erythema [Recovered/Resolved]
  - Swelling [Recovering/Resolving]
  - Nausea [Recovered/Resolved]
  - Incorrect dose administered [Recovered/Resolved]
  - Arthralgia [Not Recovered/Not Resolved]

NARRATIVE: CASE EVENT DATE: 202103
